FAERS Safety Report 4383289-7 (Version None)
Quarter: 2004Q2

REPORT INFORMATION
  Report Type: 
  Country: None (occurrence: None)
  Receive Date: 20040618
  Receipt Date: 20040218
  Transmission Date: 20050107
  Serious: Yes (Other)
  Sender: FDA-Public Use
  Company Number: JP-JNJFOC-20040300385

PATIENT
  Age: 51 Year
  Sex: Male

DRUGS (14)
  1. REMICADE [Suspect]
     Indication: RHEUMATOID ARTHRITIS
     Dosage: 162 MG, INTRAVENOUS
     Route: 042
     Dates: start: 20031014
  2. REMICADE [Suspect]
     Indication: RHEUMATOID ARTHRITIS
     Dosage: 162 MG, INTRAVENOUS
     Route: 042
     Dates: start: 20031028
  3. ALPROSTADIL (ALPROSTADIL) [Concomitant]
  4. FAMOTIDINE [Concomitant]
  5. LOXOPROFEN SODIUM (LOXOPROFEN SODIUM) [Concomitant]
  6. MAGNESIUM OXIDE (MAGNESIUM OXIDE) [Concomitant]
  7. MECOBALAMIN (MECOBALAMIN) [Concomitant]
  8. METHOTREXATE [Concomitant]
  9. MIZORIBINE (MIZORIBINE) [Concomitant]
  10. PREDNISOLONE [Concomitant]
  11. SALAZOSULFAPYRIDINE (SULFASALAZINE) [Concomitant]
  12. SAPOGRELATE HYDROCHLORIDE (SAPOGRELATE HYDROCHLORIDE) [Concomitant]
  13. WARFARIN SODIUM [Concomitant]
  14. LAC 8 (LACTOSE) [Concomitant]

REACTIONS (1)
  - LEG AMPUTATION [None]
